FAERS Safety Report 18122787 (Version 1)
Quarter: 2020Q3

REPORT INFORMATION
  Report Type: Spontaneous
  Country: GH (occurrence: GH)
  Receive Date: 20200807
  Receipt Date: 20200807
  Transmission Date: 20201103
  Serious: Yes (Other)
  Sender: FDA-Public Use
  Company Number: GH-009507513-2008GHA000821

PATIENT
  Age: 37 Year
  Sex: Female
  Weight: 68 kg

DRUGS (4)
  1. LAMIVUDINE. [Concomitant]
     Active Substance: LAMIVUDINE
     Indication: HIV INFECTION
     Dosage: 300 MILLIGRAM
     Dates: start: 2014
  2. NEXPLANON [Suspect]
     Active Substance: ETONOGESTREL
     Indication: CONTRACEPTION
     Dosage: 68 MILLIGRAM, LEFT UPPER ARM
     Route: 059
     Dates: start: 20171206, end: 202002
  3. EFAVIRENZ. [Interacting]
     Active Substance: EFAVIRENZ
     Indication: HIV INFECTION
     Dosage: 600 MILLIGRAM
     Dates: start: 2014
  4. TENOFOVIR [Concomitant]
     Active Substance: TENOFOVIR
     Indication: HIV INFECTION
     Dosage: 300 MILLIGRAM
     Dates: start: 2014

REACTIONS (4)
  - Unintended pregnancy [Recovered/Resolved]
  - Pregnancy with implant contraceptive [Recovered/Resolved]
  - Treatment failure [Unknown]
  - Drug interaction [Unknown]

NARRATIVE: CASE EVENT DATE: 20191231
